FAERS Safety Report 14923513 (Version 1)
Quarter: 2018Q2

REPORT INFORMATION
  Report Type: Spontaneous
  Country: US (occurrence: US)
  Receive Date: 20180522
  Receipt Date: 20180522
  Transmission Date: 20180711
  Serious: Yes (Other)
  Sender: FDA-Public Use
  Company Number: US-TEVA-767133USA

PATIENT
  Sex: Female

DRUGS (1)
  1. NYSTATIN. [Suspect]
     Active Substance: NYSTATIN
     Indication: GASTROINTESTINAL FUNGAL INFECTION
     Dosage: 500,000 UNITS
     Route: 048

REACTIONS (2)
  - Proctalgia [Unknown]
  - Haematochezia [Unknown]
